FAERS Safety Report 8554736-1 (Version None)
Quarter: 2012Q3

REPORT INFORMATION
  Report Type: 
  Country: None (occurrence: None)
  Receive Date: 20120731
  Receipt Date: 20120720
  Transmission Date: 20120928
  Serious: Yes (Hospitalization)
  Sender: FDA-Public Use
  Company Number: DE-CELGENEUS-CA033-10-0771

PATIENT
  Age: 47 Year
  Sex: Male
  Weight: 83.5 kg

DRUGS (1)
  1. ABRAXANE [Suspect]
     Indication: MALIGNANT MELANOMA
     Route: 041
     Dates: start: 20101130

REACTIONS (1)
  - DEVICE RELATED INFECTION [None]
